FAERS Safety Report 9219869 (Version 1)
Quarter: 2013Q1

REPORT INFORMATION
  Report Type: Spontaneous
  Country: US (occurrence: None)
  Receive Date: 20120828
  Receipt Date: 20120828
  Transmission Date: 20140127
  Serious: Yes (Hospitalization)
  Sender: FDA-Public Use
  Company Number: 2011BH032577

PATIENT
  Age: 53 Year
  Sex: Female
  Weight: 99.79 kg

DRUGS (10)
  1. KIOVIG LIQUID 10% SOLUTION FOR INFUSION_VIAL, GLASS(IMMUNOGLOBULIN, NORMAL HUMAN) (SOLUTION FOR INFUSION) [Suspect]
     Indication: CHRONIC INFLAMMATORY DEMYELINATING POLYRADICULONEUROPATHY
     Dosage: 3 IN 1 M
     Route: 042
     Dates: start: 20111005, end: 20111005
  2. AMIODARONE (AMIODARONE) (UNKNOWN) [Suspect]
     Indication: ATRIAL FIBRILLATION
     Route: 048
     Dates: start: 20111001, end: 20111005
  3. NEURONTIN (GABAPENTIN) ( UKNOWN ) [Concomitant]
  4. CLONAZEPAM (CLONAZEPAM) (UKNOWN) [Concomitant]
  5. DABIGATRAN ETEXILATE (DABIGATRAN ETEXILATE) (UNKNOWN) [Concomitant]
  6. ARMOUR THYROID (THYROID) (UKNOWN) [Concomitant]
  7. SYNTHROID (LEVOTHYROXINE SODIUM) (UNKNOWN) [Concomitant]
  8. TOPROL XL (UNKNOWN) [Concomitant]
  9. SIMVASTATIN [Concomitant]
  10. TYLENOL (UNKNOWN) [Concomitant]

REACTIONS (4)
  - Dyspnoea [None]
  - Rash [None]
  - Cough [None]
  - Urticaria [None]
